FAERS Safety Report 23078464 (Version 2)
Quarter: 2023Q4

REPORT INFORMATION
  Report Type: Spontaneous
  Country: US (occurrence: US)
  Receive Date: 20231018
  Receipt Date: 20231025
  Transmission Date: 20240109
  Serious: Yes (Life-Threatening, Hospitalization, Other)
  Sender: FDA-Public Use
  Company Number: US-CIPLA LTD.-2023US06391

PATIENT

DRUGS (1)
  1. ATORVASTATIN [Suspect]
     Active Substance: ATORVASTATIN
     Indication: Hyperlipidaemia
     Dosage: UNK (40 MG DAILY)
     Route: 065

REACTIONS (3)
  - Acute respiratory failure [Recovering/Resolving]
  - Fall [Recovering/Resolving]
  - Immune-mediated myositis [Recovering/Resolving]
